FAERS Safety Report 4934232-0 (Version None)
Quarter: 2006Q1

REPORT INFORMATION
  Report Type: 
  Country: None (occurrence: None)
  Receive Date: 20060307
  Receipt Date: 20060228
  Transmission Date: 20060701
  Serious: Yes (Hospitalization, Other)
  Sender: FDA-Public Use
  Company Number: US-AVENTIS-200612026US

PATIENT
  Sex: Male
  Weight: 92 kg

DRUGS (3)
  1. LANTUS [Suspect]
     Indication: DIABETES MELLITUS NON-INSULIN-DEPENDENT
     Dosage: DOSE UNIT: UNITS
     Dates: start: 20050501
  2. WELLBUTRIN [Concomitant]
     Dosage: DOSE: UNK
  3. SPIRONOLACTONE [Concomitant]
     Dosage: DOSE: UNK

REACTIONS (4)
  - COUGH [None]
  - FLUID RETENTION [None]
  - PNEUMONIA [None]
  - WEIGHT DECREASED [None]
